FAERS Safety Report 5062194-7 (Version None)
Quarter: 2006Q3

REPORT INFORMATION
  Report Type: 
  Country: None (occurrence: None)
  Receive Date: 20060726
  Receipt Date: 20060719
  Transmission Date: 20061208
  Serious: Yes (Other)
  Sender: FDA-Public Use
  Company Number: PHEH2006US09313

PATIENT
  Sex: Male

DRUGS (3)
  1. RITALIN [Suspect]
  2. MARIJUANA [Concomitant]
  3. COCAINE [Concomitant]

REACTIONS (5)
  - DRUG ABUSER [None]
  - DRUG ADMINISTRATION ERROR [None]
  - DRUG DEPENDENCE [None]
  - DRUG SCREEN POSITIVE [None]
  - REHABILITATION THERAPY [None]
